FAERS Safety Report 8159228-X (Version None)
Quarter: 2012Q1

REPORT INFORMATION
  Report Type: 
  Country: None (occurrence: None)
  Receive Date: 20120223
  Receipt Date: 20120214
  Transmission Date: 20120608
  Serious: Yes (Other)
  Sender: FDA-Public Use
  Company Number: US-JNJFOC-20120207845

PATIENT
  Sex: Female
  Weight: 102.06 kg

DRUGS (6)
  1. DURAGESIC-100 [Suspect]
     Route: 062
     Dates: end: 20090101
  2. DURAGESIC-100 [Suspect]
     Route: 062
     Dates: start: 20090101
  3. OMEPRAZOLE [Concomitant]
     Route: 048
  4. DURAGESIC-100 [Suspect]
     Route: 062
  5. FENTANYL-100 [Suspect]
     Indication: ARTHRITIS
     Route: 062
  6. DURAGESIC-100 [Suspect]
     Indication: ARTHRITIS
     Route: 062

REACTIONS (7)
  - DEPENDENCE [None]
  - CHOLELITHIASIS [None]
  - PAIN [None]
  - ARTHRALGIA [None]
  - NEPHROLITHIASIS [None]
  - MIGRAINE [None]
  - DRUG INEFFECTIVE [None]
